FAERS Safety Report 10060836 (Version 1)
Quarter: 2014Q2

REPORT INFORMATION
  Report Type: Spontaneous
  Country: FR (occurrence: FR)
  Receive Date: 20140404
  Receipt Date: 20140404
  Transmission Date: 20141212
  Serious: Yes (Hospitalization)
  Sender: FDA-Public Use
  Company Number: FR-ABBVIE-14P-056-1221665-00

PATIENT
  Age: 71 Year
  Sex: Female

DRUGS (7)
  1. ZECLAR 500 MG [Suspect]
     Indication: BRONCHITIS
     Route: 048
     Dates: start: 20131213, end: 20131221
  2. AUGMENTIN [Suspect]
     Indication: BRONCHITIS
     Dosage: 3/375 GRAM DAILY; FORM STRENGTH: 1G/125 MG; DAILY DOSE 3 G
     Route: 048
     Dates: start: 20131205, end: 20131221
  3. ESOMEPRAZOLE [Concomitant]
     Indication: PRODUCT USED FOR UNKNOWN INDICATION
     Route: 048
  4. PREVISCAN [Concomitant]
     Indication: PRODUCT USED FOR UNKNOWN INDICATION
     Route: 048
  5. PAROXETINE [Concomitant]
     Indication: PRODUCT USED FOR UNKNOWN INDICATION
     Route: 048
  6. ACTONEL [Concomitant]
     Indication: PRODUCT USED FOR UNKNOWN INDICATION
     Route: 048
  7. UVEDOSE [Concomitant]
     Indication: PRODUCT USED FOR UNKNOWN INDICATION
     Route: 048

REACTIONS (7)
  - Microcytic anaemia [Recovering/Resolving]
  - Agranulocytosis [Recovered/Resolved]
  - Dyspnoea [Unknown]
  - Pallor [Unknown]
  - Gastric polyps [Unknown]
  - Hiatus hernia [Unknown]
  - Escherichia infection [Unknown]
